FAERS Safety Report 15284309 (Version 1)
Quarter: 2018Q3

REPORT INFORMATION
  Report Type: Spontaneous
  Country: JP (occurrence: JP)
  Receive Date: 20180816
  Receipt Date: 20180816
  Transmission Date: 20181010
  Serious: Yes (Other)
  Sender: FDA-Public Use
  Company Number: JP-MYLANLABS-2018M1062112

PATIENT

DRUGS (2)
  1. VALPROIC ACID MYLAN [Suspect]
     Active Substance: VALPROIC ACID
     Dosage: REDUCED DOSE
     Route: 065
  2. VALPROIC ACID MYLAN [Suspect]
     Active Substance: VALPROIC ACID
     Indication: EPILEPSY
     Dosage: UNK
     Route: 065

REACTIONS (1)
  - Renal tubular disorder [Recovering/Resolving]
